FAERS Safety Report 17222402 (Version 2)
Quarter: 2020Q1

REPORT INFORMATION
  Report Type: Report from Study
  Country: NZ (occurrence: NZ)
  Receive Date: 20200101
  Receipt Date: 20200114
  Transmission Date: 20200409
  Serious: Yes (Life-Threatening)
  Sender: FDA-Public Use
  Company Number: NZ-BAXTER-2019BAX026716

PATIENT
  Age: 51 Year
  Sex: Female

DRUGS (18)
  1. BASILIXIMAB [Concomitant]
     Active Substance: BASILIXIMAB
     Indication: RENAL TRANSPLANT
     Route: 065
     Dates: start: 20191211
  2. CEFUROXIME. [Concomitant]
     Active Substance: CEFUROXIME
     Indication: RENAL TRANSPLANT
     Route: 065
     Dates: start: 20191211
  3. ROCURONIUM [Concomitant]
     Active Substance: ROCURONIUM BROMIDE
     Indication: RENAL TRANSPLANT
     Route: 065
     Dates: start: 20191211
  4. ONDANSETRON-CLARIS [Suspect]
     Active Substance: ONDANSETRON
     Indication: RENAL TRANSPLANT
     Route: 065
     Dates: start: 20191211
  5. LABETALOL [Concomitant]
     Active Substance: LABETALOL\LABETALOL HYDROCHLORIDE
     Indication: RENAL TRANSPLANT
     Route: 065
     Dates: start: 20191211
  6. METHYLPREDNISOLONE. [Concomitant]
     Active Substance: METHYLPREDNISOLONE
     Indication: RENAL TRANSPLANT
     Route: 065
     Dates: start: 20191211
  7. METOPROLOL. [Concomitant]
     Active Substance: METOPROLOL
     Indication: PRODUCT USED FOR UNKNOWN INDICATION
     Route: 065
  8. AMITRIPTYLINE [Concomitant]
     Active Substance: AMITRIPTYLINE
     Indication: PRODUCT USED FOR UNKNOWN INDICATION
     Route: 065
  9. CALCIUM CHLORIDE. [Concomitant]
     Active Substance: CALCIUM CHLORIDE
     Indication: RENAL TRANSPLANT
     Dosage: CALCIUM CHLORIDE 10 ML; 17 MMOL
     Route: 065
     Dates: start: 20191211
  10. FENTANYL. [Concomitant]
     Active Substance: FENTANYL
     Indication: RENAL TRANSPLANT
     Route: 065
     Dates: start: 20191211
  11. SODIUM CHLORIDE, 0.9%, SOLUTION FOR INFUSION [Suspect]
     Active Substance: SODIUM CHLORIDE
     Indication: RENAL TRANSPLANT
     Dosage: END TIME: APPROXIMATELY 21:30 HOURS
     Route: 042
     Dates: start: 20191211, end: 20191211
  12. FRUSEMIDE-CLARIS [Suspect]
     Active Substance: FUROSEMIDE
     Indication: RENAL TRANSPLANT
     Route: 065
     Dates: start: 20191211
  13. OSMITROL [Suspect]
     Active Substance: MANNITOL
     Indication: RENAL TRANSPLANT
     Route: 065
     Dates: start: 20191211
  14. PLASMA-LYTE 148 [Suspect]
     Active Substance: MAGNESIUM CHLORIDE\POTASSIUM CHLORIDE\SODIUM ACETATE\SODIUM CHLORIDE\SODIUM GLUCONATE
     Indication: RENAL TRANSPLANT
     Dosage: END TIME: APPROXIMATELY 21:30 HOURS
     Route: 042
     Dates: start: 20191211, end: 20191211
  15. MIDAZOLAM-CLARIS [Suspect]
     Active Substance: MIDAZOLAM HYDROCHLORIDE
     Indication: RENAL TRANSPLANT
     Route: 065
     Dates: start: 20191211
  16. PROVIVE 1% [Suspect]
     Active Substance: PROPOFOL
     Indication: RENAL TRANSPLANT
     Route: 065
     Dates: start: 20191211
  17. CLONIDINE. [Concomitant]
     Active Substance: CLONIDINE
     Indication: RENAL TRANSPLANT
     Route: 065
     Dates: start: 20191211
  18. ASPIRIN. [Concomitant]
     Active Substance: ASPIRIN
     Indication: PRODUCT USED FOR UNKNOWN INDICATION
     Route: 065

REACTIONS (3)
  - Atrial fibrillation [Recovered/Resolved]
  - Hyperkalaemia [Unknown]
  - Electrocardiogram T wave peaked [Recovered/Resolved]

NARRATIVE: CASE EVENT DATE: 20191211
